FAERS Safety Report 6169916-2 (Version None)
Quarter: 2009Q2

REPORT INFORMATION
  Report Type: 
  Country: None (occurrence: None)
  Receive Date: 20090428
  Receipt Date: 20080401
  Transmission Date: 20091009
  Serious: No
  Sender: FDA-Public Use
  Company Number: A0718648A

PATIENT
  Age: 70 Year
  Sex: Female

DRUGS (2)
  1. SEREVENT [Suspect]
     Indication: LUNG DISORDER
     Dosage: 1PUFF PER DAY
     Route: 055
     Dates: start: 20070101, end: 20080328
  2. NO CONCURRENT MEDICATION [Concomitant]

REACTIONS (3)
  - ARRHYTHMIA [None]
  - DRUG INEFFECTIVE [None]
  - HEART RATE DECREASED [None]
